FAERS Safety Report 10502746 (Version 3)
Quarter: 2014Q4

REPORT INFORMATION
  Report Type: Report from Study
  Country: US (occurrence: US)
  Receive Date: 20141007
  Receipt Date: 20141107
  Transmission Date: 20150528
  Serious: Yes (Hospitalization, Other)
  Sender: FDA-Public Use
  Company Number: US-JNJFOC-20140609701

PATIENT
  Age: 73 Year
  Sex: Male
  Weight: 111.13 kg

DRUGS (1)
  1. GOLIMUMAB [Suspect]
     Active Substance: GOLIMUMAB
     Indication: PSORIASIS
     Route: 058
     Dates: start: 20121126, end: 20130815

REACTIONS (6)
  - Basal cell carcinoma [Unknown]
  - Cervical vertebral fracture [Recovered/Resolved]
  - Road traffic accident [Recovered/Resolved]
  - Basal cell carcinoma [Unknown]
  - Intervertebral disc protrusion [Unknown]
  - Squamous cell carcinoma [Unknown]

NARRATIVE: CASE EVENT DATE: 20121126
